FAERS Safety Report 10947570 (Version 1)
Quarter: 2015Q1

REPORT INFORMATION
  Report Type: Spontaneous
  Country: US (occurrence: None)
  Receive Date: 20150212
  Receipt Date: 20150212
  Transmission Date: 20150721
  Serious: No
  Sender: FDA-Public Use
  Company Number: TPA2011A05806

PATIENT
  Age: 53 Year
  Sex: Male
  Weight: 120.2 kg

DRUGS (9)
  1. BUTALBITAL/ACETAMINOPHEN (BUTALBITAL, PARACETAMOL) [Concomitant]
  2. AMLODIPINE [Concomitant]
     Active Substance: AMLODIPINE BESYLATE
  3. COLCRYS [Concomitant]
     Active Substance: COLCHICINE
  4. VALTURNA (ANTIHYPERTENSIVES) [Concomitant]
  5. UNKNOWN CHINESE HERBS (HERBAL PREPARATION) [Concomitant]
  6. ULORIC [Suspect]
     Active Substance: FEBUXOSTAT
     Indication: GOUT
     Route: 048
     Dates: start: 20110831, end: 20110908
  7. BUSPAR (BUSPIRONE HYDROCHLORIDE) [Concomitant]
  8. SYNTHROID [Concomitant]
     Active Substance: LEVOTHYROXINE SODIUM
  9. IBUPROFEN. [Concomitant]
     Active Substance: IBUPROFEN

REACTIONS (2)
  - Lip swelling [None]
  - Swollen tongue [None]

NARRATIVE: CASE EVENT DATE: 20110913
